FAERS Safety Report 16953651 (Version 1)
Quarter: 2019Q4

REPORT INFORMATION
  Report Type: Spontaneous
  Country: US (occurrence: US)
  Receive Date: 20191023
  Receipt Date: 20191023
  Transmission Date: 20200122
  Serious: No
  Sender: FDA-Public Use
  Company Number: US-DERMIRA, INC.-US-2019DER000486

PATIENT
  Age: 16 Year
  Sex: Male
  Weight: 72.56 kg

DRUGS (2)
  1. QBREXZA [Suspect]
     Active Substance: GLYCOPYRRONIUM TOSYLATE
     Indication: HYPERHIDROSIS
     Dosage: UNK, QD
     Route: 061
     Dates: start: 20181105, end: 2018
  2. QBREXZA [Suspect]
     Active Substance: GLYCOPYRRONIUM TOSYLATE
     Dosage: UNK, ONCE
     Route: 061
     Dates: start: 20190915, end: 20190915

REACTIONS (9)
  - Swelling face [Not Recovered/Not Resolved]
  - Off label use [Unknown]
  - Aptyalism [Not Recovered/Not Resolved]
  - Wrong technique in product usage process [Unknown]
  - Feeding disorder [Recovered/Resolved]
  - Mydriasis [Not Recovered/Not Resolved]
  - Vision blurred [Recovered/Resolved]
  - Dysphagia [Recovered/Resolved]
  - Photophobia [Not Recovered/Not Resolved]

NARRATIVE: CASE EVENT DATE: 20181105
